FAERS Safety Report 16759849 (Version 1)
Quarter: 2019Q3

REPORT INFORMATION
  Report Type: Spontaneous
  Country: US (occurrence: US)
  Receive Date: 20190830
  Receipt Date: 20190830
  Transmission Date: 20191005
  Serious: Yes (Life-Threatening, Hospitalization, Other)
  Sender: FDA-Public Use
  Company Number: US-PFIZER INC-2019367677

PATIENT
  Age: 56 Year
  Sex: Male
  Weight: 79.37 kg

DRUGS (12)
  1. PURITAN^S PRIDE C [Suspect]
     Active Substance: ASCORBIC ACID
     Indication: SUPPLEMENTATION THERAPY
     Dosage: 1000 MG, 1X/DAY
     Route: 048
     Dates: start: 200607, end: 201907
  2. PURITAN^S PRIDE HIGH POTENCYMAGNESIUM [Suspect]
     Active Substance: MAGNESIUM
     Dosage: 500 MG, 1X/DAY
     Dates: end: 201907
  3. PREDNISONE [PREDNISONE ACETATE] [Concomitant]
     Active Substance: PREDNISONE ACETATE
     Dosage: UNK
  4. PURITAN^S PRIDE HIGH POTENCYMAGNESIUM [Suspect]
     Active Substance: MAGNESIUM
     Dosage: 500 MG, 2X/DAY
  5. RAPAMUNE [Suspect]
     Active Substance: SIROLIMUS
     Indication: IMMUNOSUPPRESSANT DRUG THERAPY
     Dosage: 0.5 MG, 2X/DAY
     Route: 048
     Dates: start: 200607, end: 20190524
  6. TACROLIMUS. [Suspect]
     Active Substance: TACROLIMUS
     Dosage: 1.5 MG, UNK
  7. TACROLIMUS. [Suspect]
     Active Substance: TACROLIMUS
     Indication: IMMUNOSUPPRESSANT DRUG THERAPY
     Dosage: 1 MG, 2X/DAY
     Dates: start: 200607, end: 20190524
  8. PURITAN^S PRIDE HIGH POTENCYMAGNESIUM [Suspect]
     Active Substance: MAGNESIUM
     Indication: SUPPLEMENTATION THERAPY
     Dosage: 500 MG, 3X/DAY
     Route: 048
     Dates: start: 200607
  9. CELLCEPT [Concomitant]
     Active Substance: MYCOPHENOLATE MOFETIL\MYCOPHENOLATE MOFETIL HYDROCHLORIDE
     Dosage: UNK
  10. PRAVASTATIN. [Concomitant]
     Active Substance: PRAVASTATIN
     Dosage: UNK
  11. VASCEPA [Concomitant]
     Active Substance: ICOSAPENT ETHYL
     Dosage: UNK
  12. INSULIN [Concomitant]
     Active Substance: INSULIN NOS
     Dosage: UNK

REACTIONS (1)
  - Renal failure [Recovered/Resolved]

NARRATIVE: CASE EVENT DATE: 200607
